FAERS Safety Report 8574127 (Version 8)
Quarter: 2016Q3

REPORT INFORMATION
  Report Type: Spontaneous
  Country: US (occurrence: US)
  Receive Date: 20120522
  Receipt Date: 20160725
  Transmission Date: 20161109
  Serious: Yes (Hospitalization, Disabling, Other)
  Sender: FDA-Public Use
  Company Number: US-009507513-1205USA02852

PATIENT
  Sex: Female

DRUGS (3)
  1. FOSAMAX [Suspect]
     Active Substance: ALENDRONATE SODIUM
     Indication: PROPHYLAXIS
     Dosage: 70 MG, QW
     Route: 048
     Dates: start: 200208, end: 200804
  2. FOSAMAX [Suspect]
     Active Substance: ALENDRONATE SODIUM
     Indication: OSTEOPOROSIS
     Dosage: 10 MG, UNK
     Dates: start: 200201, end: 200208
  3. ALENDRONATE SODIUM. [Suspect]
     Active Substance: ALENDRONATE SODIUM
     Indication: OSTEOPOROSIS
     Dosage: 70 MG, UNK
     Dates: start: 200802, end: 201008

REACTIONS (45)
  - Internal fixation of fracture [Unknown]
  - Femur fracture [Not Recovered/Not Resolved]
  - Stress fracture [Not Recovered/Not Resolved]
  - Electrocardiogram T wave inversion [Unknown]
  - Dysaesthesia [Unknown]
  - Malaise [Recovered/Resolved]
  - Tooth disorder [Unknown]
  - Arthralgia [Not Recovered/Not Resolved]
  - Osteoporosis [Not Recovered/Not Resolved]
  - Colon cancer [Unknown]
  - Adverse event [Unknown]
  - Nasopharyngitis [Unknown]
  - Vertebral osteophyte [Unknown]
  - Back pain [Not Recovered/Not Resolved]
  - Low turnover osteopathy [Not Recovered/Not Resolved]
  - Tooth loss [Not Recovered/Not Resolved]
  - Influenza like illness [Unknown]
  - Osteopenia [Unknown]
  - Fall [Unknown]
  - Cardiac murmur [Unknown]
  - Vertigo [Unknown]
  - Cough [Not Recovered/Not Resolved]
  - Arthropathy [Unknown]
  - Heart sounds abnormal [Unknown]
  - Pain in extremity [Unknown]
  - Chest pain [Unknown]
  - Colectomy [Unknown]
  - Pulmonary mass [Unknown]
  - Presyncope [Recovered/Resolved]
  - Spinal compression fracture [Unknown]
  - Body height decreased [Unknown]
  - Spinal disorder [Unknown]
  - Faeces hard [Unknown]
  - Back pain [Not Recovered/Not Resolved]
  - Endoscopy [Unknown]
  - Oral surgery [Not Recovered/Not Resolved]
  - Lumbar vertebral fracture [Unknown]
  - Headache [Unknown]
  - Femur fracture [Not Recovered/Not Resolved]
  - Metastases to lymph nodes [Unknown]
  - Bradycardia [Unknown]
  - Nausea [Recovered/Resolved]
  - Chest pain [Not Recovered/Not Resolved]
  - Oral surgery [Unknown]
  - Cardiomyopathy [Unknown]

NARRATIVE: CASE EVENT DATE: 20020207
